FAERS Safety Report 13455331 (Version 1)
Quarter: 2017Q2

REPORT INFORMATION
  Report Type: Spontaneous
  Country: US (occurrence: US)
  Receive Date: 20170419
  Receipt Date: 20170419
  Transmission Date: 20170830
  Serious: No
  Sender: FDA-Public Use
  Company Number: US-PFIZER INC-2017162172

PATIENT
  Age: 25 Year
  Sex: Female

DRUGS (1)
  1. EUCRISA [Suspect]
     Active Substance: CRISABOROLE
     Indication: DERMATITIS ATOPIC
     Dosage: 2 %, SINGLE (APPLIED TOPICALLY TO AFFECTED AREA ONCE)
     Route: 061
     Dates: start: 20170408, end: 20170408

REACTIONS (4)
  - Headache [Recovered/Resolved]
  - Facial pain [Recovered/Resolved]
  - Skin burning sensation [Recovered/Resolved]
  - Erythema [Not Recovered/Not Resolved]

NARRATIVE: CASE EVENT DATE: 20170408
